FAERS Safety Report 7019131-5 (Version None)
Quarter: 2010Q3

REPORT INFORMATION
  Report Type: 
  Country: None (occurrence: None)
  Receive Date: 20100928
  Receipt Date: 20100924
  Transmission Date: 20110219
  Serious: Yes (Life-Threatening)
  Sender: FDA-Public Use
  Company Number: B0676387A

PATIENT
  Sex: Female
  Weight: 65 kg

DRUGS (3)
  1. LAPATINIB [Suspect]
     Indication: BREAST CANCER
     Dosage: 1250MG PER DAY
     Route: 048
     Dates: start: 20100707
  2. PACLITAXEL [Suspect]
     Indication: BREAST CANCER
     Dosage: 175MG EVERY 3 WEEKS
     Route: 042
     Dates: start: 20100707
  3. MYOCET [Suspect]
     Indication: BREAST CANCER
     Dosage: 60MG EVERY 3 WEEKS
     Route: 042
     Dates: start: 20100707

REACTIONS (3)
  - ERYTHEMA [None]
  - LEUKOPENIA [None]
  - NEUTROPENIA [None]
